FAERS Safety Report 9669742 (Version 2)
Quarter: 2013Q4

REPORT INFORMATION
  Report Type: Spontaneous
  Country: JP (occurrence: JP)
  Receive Date: 20131105
  Receipt Date: 20131202
  Transmission Date: 20140711
  Serious: Yes (Other)
  Sender: FDA-Public Use
  Company Number: JP-PFIZER INC-2013314047

PATIENT
  Age: 45 Year
  Sex: Female

DRUGS (1)
  1. CELECOX [Suspect]
     Indication: ARTHRALGIA
     Dosage: UNK
     Route: 048
     Dates: start: 20130820, end: 20130826

REACTIONS (1)
  - Erythema [Recovered/Resolved]
